FAERS Safety Report 6474877-2 (Version None)
Quarter: 2009Q4

REPORT INFORMATION
  Report Type: 
  Country: None (occurrence: None)
  Receive Date: 20091204
  Receipt Date: 20090219
  Transmission Date: 20100525
  Serious: Yes (Death)
  Sender: FDA-Public Use
  Company Number: DE-ELI_LILLY_AND_COMPANY-DE200902004972

PATIENT
  Sex: Male

DRUGS (4)
  1. FORTEO [Suspect]
     Indication: OSTEOPOROSIS
     Dosage: UNK, DAILY (1/D)
     Route: 058
     Dates: start: 20080424
  2. CORTISON [Concomitant]
     Dosage: UNK, UNKNOWN
     Route: 065
  3. ANALGESIC                          /00735901/ [Concomitant]
     Dosage: UNK, UNKNOWN
     Route: 065
  4. CALCIUM EFFERVESCENT [Concomitant]
     Dosage: UNK, UNKNOWN
     Route: 048

REACTIONS (1)
  - SUDDEN CARDIAC DEATH [None]
